FAERS Safety Report 9783609 (Version 1)
Quarter: 2013Q4

REPORT INFORMATION
  Report Type: Spontaneous
  Country: ES (occurrence: ES)
  Receive Date: 20131226
  Receipt Date: 20131226
  Transmission Date: 20140711
  Serious: Yes (Other)
  Sender: FDA-Public Use
  Company Number: ES-BAYER-2013-153553

PATIENT
  Age: 65 Year
  Sex: Female

DRUGS (1)
  1. ACTIRA [Suspect]
     Dosage: UNK
     Route: 048
     Dates: start: 20131121

REACTIONS (3)
  - Respiratory failure [Unknown]
  - Anaphylactic reaction [Unknown]
  - Dysphagia [Unknown]
